FAERS Safety Report 8779018 (Version 1)
Quarter: 2012Q4

REPORT INFORMATION
  Report Type: 
  Country: CN (occurrence: CN)
  Receive Date: 20120912
  Receipt Date: 20120912
  Transmission Date: 20130627
  Serious: Yes (Hospitalization, Other)
  Sender: FDA-Public Use
  Company Number: CN-PFIZER INC-2012222870

PATIENT
  Age: 71 Year
  Sex: Male

DRUGS (1)
  1. CORDARONE [Suspect]
     Indication: VENTRICULAR EXTRASYSTOLES
     Dosage: 100 mg, 1x/day
     Route: 048
     Dates: start: 20091120, end: 20101120

REACTIONS (5)
  - Arrhythmia [Recovering/Resolving]
  - Electrocardiogram ST segment abnormal [Recovering/Resolving]
  - Nodal rhythm [Recovering/Resolving]
  - Chest pain [Recovering/Resolving]
  - Heart rate decreased [Recovering/Resolving]
